FAERS Safety Report 20432874 (Version 1)
Quarter: 2022Q1

REPORT INFORMATION
  Report Type: Spontaneous
  Country: US (occurrence: US)
  Receive Date: 20220205
  Receipt Date: 20220205
  Transmission Date: 20220423
  Serious: Yes (Death)
  Sender: FDA-Public Use
  Company Number: US-CELLTRION INC.-2022US001000

PATIENT

DRUGS (1)
  1. TRUXIMA [Suspect]
     Active Substance: RITUXIMAB-ABBS
     Indication: B-cell small lymphocytic lymphoma
     Dosage: 795 MG, WEEKLY X 4
     Dates: start: 20201023

REACTIONS (1)
  - Death [Fatal]
